FAERS Safety Report 8906271 (Version 1)
Quarter: 2012Q4

REPORT INFORMATION
  Report Type: Spontaneous
  Country: DE (occurrence: None)
  Receive Date: 20121107
  Receipt Date: 20121107
  Transmission Date: 20130627
  Serious: Yes (Other)
  Sender: FDA-Public Use
  Company Number: GER/GER/12/0026458

PATIENT
  Age: 32 Year
  Sex: Female

DRUGS (3)
  1. CITALOPRAM (CITALOPRAM) [Suspect]
     Indication: DEPRESSION
     Route: 048
     Dates: start: 20110318, end: 20111219
  2. VIGIL [Suspect]
     Indication: NARCOLEPSY
     Route: 048
     Dates: start: 20110318, end: 20111219
  3. BETAMETHASONE [Concomitant]

REACTIONS (2)
  - Premature labour [None]
  - Exposure during pregnancy [None]
